FAERS Safety Report 23344451 (Version 1)
Quarter: 2023Q4

REPORT INFORMATION
  Report Type: Report from Study
  Country: CA (occurrence: CA)
  Receive Date: 20231228
  Receipt Date: 20231228
  Transmission Date: 20240109
  Serious: Yes (Other)
  Sender: FDA-Public Use
  Company Number: CA-JNJFOC-20231264429

PATIENT
  Age: 7 Year
  Sex: Male

DRUGS (3)
  1. REMICADE [Suspect]
     Active Substance: INFLIXIMAB
     Indication: Crohn^s disease
     Route: 041
     Dates: start: 20220309
  2. REMICADE [Suspect]
     Active Substance: INFLIXIMAB
     Dosage: ALSO REPORTED AS 600 MG
     Route: 041
  3. REMICADE [Suspect]
     Active Substance: INFLIXIMAB
     Route: 041
     Dates: start: 20231219

REACTIONS (2)
  - Crohn^s disease [Unknown]
  - Drug level below therapeutic [Unknown]
